FAERS Safety Report 25179973 (Version 2)
Quarter: 2025Q2

REPORT INFORMATION
  Report Type: Spontaneous
  Country: FR (occurrence: FR)
  Receive Date: 20250409
  Receipt Date: 20250605
  Transmission Date: 20250716
  Serious: Yes (Hospitalization, Other)
  Sender: GILEAD
  Company Number: FR-GILEAD-2025-0709369

PATIENT
  Age: 62 Year
  Sex: Female

DRUGS (1)
  1. YESCARTA [Suspect]
     Active Substance: AXICABTAGENE CILOLEUCEL
     Indication: Follicular lymphoma
     Route: 065
     Dates: start: 20250121

REACTIONS (8)
  - Pancytopenia [Unknown]
  - General physical health deterioration [Unknown]
  - Pyrexia [Unknown]
  - B-cell lymphoma recurrent [Unknown]
  - Myelosuppression [Unknown]
  - Agranulocytosis [Unknown]
  - Blood product transfusion dependent [Unknown]
  - Haemophagocytic lymphohistiocytosis [Unknown]

NARRATIVE: CASE EVENT DATE: 20250206
